FAERS Safety Report 6453762-6 (Version None)
Quarter: 2009Q4

REPORT INFORMATION
  Report Type: 
  Country: None (occurrence: None)
  Receive Date: 20091117
  Receipt Date: 20090924
  Transmission Date: 20100525
  Serious: Yes (Hospitalization)
  Sender: FDA-Public Use
  Company Number: 2009SP027278

PATIENT
  Age: 66 Year
  Sex: Female

DRUGS (14)
  1. NASONEX [Suspect]
     Indication: DRUG USE FOR UNKNOWN INDICATION
     Dosage: NAS
     Route: 045
  2. ADVAIR DISKUS 100/50 [Suspect]
     Indication: CHRONIC OBSTRUCTIVE PULMONARY DISEASE
     Dosage: BID
     Dates: start: 20020101, end: 20090701
  3. SEREVENT [Suspect]
     Indication: BRONCHOSPASM
     Dosage: 50 MCG
     Dates: start: 20090701
  4. PIRBUTEROL ACETATE [Concomitant]
  5. IPRATROPIUM BROMIDE [Concomitant]
  6. ALBUTEROL SULFATE AUTOHALER [Concomitant]
  7. DILTIAZEM HYDROCHLORIDE [Concomitant]
  8. BUMETANIDE [Concomitant]
  9. ZOLPIDEM TARTRATE [Concomitant]
  10. ATORVASTATIN CALCIUM [Concomitant]
  11. CLONAZEPAM [Concomitant]
  12. HYDROXYZINE [Concomitant]
  13. POTASSIUM [Concomitant]
  14. AZELASTINE HCL [Concomitant]

REACTIONS (6)
  - ANXIETY [None]
  - CANDIDIASIS [None]
  - DRUG INEFFECTIVE [None]
  - ORAL PAIN [None]
  - VESSEL PERFORATION [None]
  - WEIGHT DECREASED [None]
